FAERS Safety Report 25433792 (Version 1)
Quarter: 2025Q2

REPORT INFORMATION
  Report Type: Spontaneous
  Country: US (occurrence: US)
  Receive Date: 20250613
  Receipt Date: 20250613
  Transmission Date: 20250717
  Serious: No
  Sender: PADAGIS
  Company Number: US-PADAGIS-2025PAD00694

PATIENT

DRUGS (3)
  1. TRETINOIN [Suspect]
     Active Substance: TRETINOIN
     Indication: Skin wrinkling
     Route: 065
     Dates: start: 202503
  2. TRETINOIN [Suspect]
     Active Substance: TRETINOIN
     Route: 065
     Dates: start: 202503
  3. GADOLINIUM [Concomitant]
     Active Substance: GADOLINIUM
     Indication: Product used for unknown indication
     Route: 065

REACTIONS (3)
  - Application site pruritus [Not Recovered/Not Resolved]
  - Rash [Recovered/Resolved]
  - Product use in unapproved indication [Unknown]

NARRATIVE: CASE EVENT DATE: 20250401
